FAERS Safety Report 7716972-3 (Version None)
Quarter: 2011Q3

REPORT INFORMATION
  Report Type: 
  Country: None (occurrence: None)
  Receive Date: 20110829
  Receipt Date: 20110817
  Transmission Date: 20111222
  Serious: Yes (Hospitalization)
  Sender: FDA-Public Use
  Company Number: IL-TEVA-297209ISR

PATIENT
  Sex: Female

DRUGS (2)
  1. PURINETHOL [Suspect]
     Indication: CROHN'S DISEASE
     Dosage: MERCAPTOPURINE 40MG OR 80MG OR PURINETHOL
  2. MERCAPTOPURINE [Suspect]
     Indication: CROHN'S DISEASE
     Dosage: MERCAPTOPURINE 40MG OR 80MG OR PURINETHOL

REACTIONS (1)
  - PANCREATITIS [None]
